FAERS Safety Report 15459041 (Version 2)
Quarter: 2018Q4

REPORT INFORMATION
  Report Type: Spontaneous
  Country: JP (occurrence: JP)
  Receive Date: 20181003
  Receipt Date: 20181008
  Transmission Date: 20190204
  Serious: Yes (Death)
  Sender: FDA-Public Use
  Company Number: JP-TEVA-2018-JP-001034J

PATIENT
  Age: 91 Year
  Sex: Female

DRUGS (1)
  1. DISOPYRAMIDE CAPSULE 100MG ^TAIYO^ [Suspect]
     Active Substance: DISOPYRAMIDE
     Indication: PRODUCT USED FOR UNKNOWN INDICATION
     Dosage: 300 MILLIGRAM DAILY;
     Route: 048

REACTIONS (2)
  - Hypoglycaemia [Unknown]
  - Death [Fatal]

NARRATIVE: CASE EVENT DATE: 201801
